FAERS Safety Report 9642056 (Version 1)
Quarter: 2013Q4

REPORT INFORMATION
  Report Type: Spontaneous
  Country: JP (occurrence: JP)
  Receive Date: 20131023
  Receipt Date: 20131023
  Transmission Date: 20140711
  Serious: Yes (Other)
  Sender: FDA-Public Use
  Company Number: PHHY2013JP116279

PATIENT
  Age: 70 Year
  Sex: Male

DRUGS (5)
  1. DOCETAXEL [Suspect]
     Indication: SQUAMOUS CELL CARCINOMA OF LUNG
     Dosage: 60 MG/M2 EVERY 3 WEEKS
  2. DOCETAXEL [Suspect]
     Dosage: 20 MG/M2 WEEKLY
  3. DOCETAXEL [Suspect]
     Dosage: 50 MG/M2, UNK
  4. DEXAMETHASONE [Concomitant]
  5. GRANISETRON [Concomitant]

REACTIONS (4)
  - Toxicity to various agents [Unknown]
  - Renal tubular disorder [Unknown]
  - Febrile neutropenia [Unknown]
  - Fatigue [Unknown]
